FAERS Safety Report 11999599 (Version 1)
Quarter: 2016Q1

REPORT INFORMATION
  Report Type: Report from Study
  Country: US (occurrence: US)
  Receive Date: 20160204
  Receipt Date: 20160204
  Transmission Date: 20160526
  Serious: Yes (Other)
  Sender: FDA-Public Use
  Company Number: US-ACCORD-037520

PATIENT
  Age: 5 Year
  Sex: Male

DRUGS (6)
  1. ASPARAGINASE [Concomitant]
     Active Substance: ASPARAGINASE
  2. VINCRISTINE [Concomitant]
     Active Substance: VINCRISTINE
  3. MERCAPTOPURINE/MERCAPTOPURINE ANHYDROUS [Concomitant]
  4. METHOTREXATE [Suspect]
     Active Substance: METHOTREXATE
     Indication: T-CELL TYPE ACUTE LEUKAEMIA
     Route: 037
  5. ONDANSETRON [Concomitant]
     Active Substance: ONDANSETRON
  6. SULFAMETHOXAZOLE/TRIMETHOPRIM [Concomitant]

REACTIONS (2)
  - Apnoea [Unknown]
  - Neurotoxicity [Unknown]
